FAERS Safety Report 11206585 (Version 1)
Quarter: 2015Q2

REPORT INFORMATION
  Report Type: Spontaneous
  Country: US (occurrence: US)
  Receive Date: 20150622
  Receipt Date: 20150622
  Transmission Date: 20150821
  Serious: No
  Sender: FDA-Public Use
  Company Number: US-ABBVIE-15P-163-1397089-00

PATIENT
  Sex: Female

DRUGS (2)
  1. VIEKIRA PAK [Suspect]
     Active Substance: DASABUVIR\OMBITASVIR\PARITAPREVIR\RITONAVIR
     Indication: HEPATITIS C
     Route: 048
     Dates: start: 20150416, end: 201505
  2. CEPHALEXIN. [Suspect]
     Active Substance: CEPHALEXIN
     Indication: SINUSITIS
     Route: 065
     Dates: start: 201505, end: 201505

REACTIONS (10)
  - Platelet count decreased [Unknown]
  - Drug hypersensitivity [Unknown]
  - Glossodynia [Unknown]
  - Sinusitis [Unknown]
  - Swelling face [Not Recovered/Not Resolved]
  - Peripheral swelling [Unknown]
  - Oropharyngeal discomfort [Unknown]
  - Erythema [Unknown]
  - Tongue disorder [Unknown]
  - Swelling face [Unknown]

NARRATIVE: CASE EVENT DATE: 201505
